FAERS Safety Report 25039545 (Version 2)
Quarter: 2025Q3

REPORT INFORMATION
  Report Type: Spontaneous
  Country: US (occurrence: US)
  Receive Date: 20250305
  Receipt Date: 20250809
  Transmission Date: 20251020
  Serious: Yes (Other)
  Sender: ALEXION PHARMACEUTICALS
  Company Number: US-AstraZeneca-CH-00815701A

PATIENT
  Age: 81 Year
  Sex: Female
  Weight: 55.791 kg

DRUGS (1)
  1. DALIRESP [Suspect]
     Active Substance: ROFLUMILAST
     Indication: Chronic obstructive pulmonary disease
     Dosage: 500 MILLIGRAM, QD
     Dates: start: 20190714, end: 20250209

REACTIONS (6)
  - Weight decreased [Unknown]
  - COVID-19 pneumonia [Unknown]
  - Depression [Unknown]
  - Diarrhoea [Unknown]
  - Insomnia [Unknown]
  - Tremor [Unknown]

NARRATIVE: CASE EVENT DATE: 20200914
